FAERS Safety Report 18540629 (Version 1)
Quarter: 2020Q4

REPORT INFORMATION
  Report Type: Spontaneous
  Country: US (occurrence: US)
  Receive Date: 20201124
  Receipt Date: 20201124
  Transmission Date: 20210114
  Serious: Yes (Hospitalization)
  Sender: FDA-Public Use
  Company Number: None

PATIENT
  Age: 32 Year
  Sex: Female

DRUGS (19)
  1. MONTELUKAST [Concomitant]
     Active Substance: MONTELUKAST SODIUM
  2. DOXYCYCL [Concomitant]
  3. PROCHLORPER [Concomitant]
  4. QUENTIAPINE [Concomitant]
  5. CLOBETASOL [Concomitant]
     Active Substance: CLOBETASOL
  6. ALBUTEROL HFA [Concomitant]
     Active Substance: ALBUTEROL SULFATE
  7. LAMOTRIGINE. [Concomitant]
     Active Substance: LAMOTRIGINE
  8. METOPROLOL TARTRATE. [Concomitant]
     Active Substance: METOPROLOL TARTRATE
  9. CITIRIZINE [Concomitant]
  10. CYCLOBENZAPRINE. [Concomitant]
     Active Substance: CYCLOBENZAPRINE
  11. FLUOXETINE [Concomitant]
     Active Substance: FLUOXETINE HYDROCHLORIDE
  12. TORADOL [Suspect]
     Active Substance: KETOROLAC TROMETHAMINE
  13. DOXEPIN [Concomitant]
     Active Substance: DOXEPIN
  14. OXYCO/APAP [Concomitant]
  15. OMEPRAZOLE. [Concomitant]
     Active Substance: OMEPRAZOLE
  16. HUMIRA [Suspect]
     Active Substance: ADALIMUMAB
     Indication: PSORIATIC ARTHROPATHY
     Dosage: ?          OTHER FREQUENCY:EVERY 14 DAYS;?
     Route: 058
     Dates: start: 20201005
  17. LEFLUNOMIDE. [Concomitant]
     Active Substance: LEFLUNOMIDE
  18. ESCITALOPRAM [Concomitant]
     Active Substance: ESCITALOPRAM OXALATE
  19. FEXOFENADINE [Concomitant]
     Active Substance: FEXOFENADINE HYDROCHLORIDE

REACTIONS (5)
  - Diarrhoea [None]
  - Sinusitis [None]
  - Condition aggravated [None]
  - Infection [None]
  - Fatigue [None]

NARRATIVE: CASE EVENT DATE: 20201111
